FAERS Safety Report 17845530 (Version 1)
Quarter: 2020Q2

REPORT INFORMATION
  Report Type: Spontaneous
  Country: US (occurrence: US)
  Receive Date: 20200529
  Receipt Date: 20200529
  Transmission Date: 20200714
  Serious: Yes (Hospitalization)
  Sender: FDA-Public Use
  Company Number: None

PATIENT
  Age: 88 Year
  Sex: Male
  Weight: 94 kg

DRUGS (2)
  1. APIXABAN (APIXABAN 2.5MG TAB) [Suspect]
     Active Substance: APIXABAN
     Dates: start: 20171101, end: 20200525
  2. APIXABAN (APIXABAN 2.5MG TAB) [Suspect]
     Active Substance: APIXABAN
     Indication: DEEP VEIN THROMBOSIS
     Route: 048
     Dates: start: 20200525, end: 20200528

REACTIONS (2)
  - Haemorrhage intracranial [None]
  - Subdural haemorrhage [None]

NARRATIVE: CASE EVENT DATE: 20200528
